FAERS Safety Report 20724779 (Version 1)
Quarter: 2022Q2

REPORT INFORMATION
  Report Type: Spontaneous
  Country: US (occurrence: None)
  Receive Date: 20220418
  Receipt Date: 20220418
  Transmission Date: 20220720
  Serious: Yes (Hospitalization)
  Sender: FDA-Public Use
  Company Number: None

PATIENT
  Age: 53 Year
  Sex: Female

DRUGS (1)
  1. AFINITOR [Suspect]
     Active Substance: EVEROLIMUS
     Dosage: FREQUENCY : DAILY;?
     Route: 048
     Dates: start: 202204

REACTIONS (5)
  - Skin exfoliation [None]
  - Diarrhoea [None]
  - Cough [None]
  - Loss of consciousness [None]
  - Hypotension [None]

NARRATIVE: CASE EVENT DATE: 20220418
